FAERS Safety Report 18009619 (Version 1)
Quarter: 2020Q3

REPORT INFORMATION
  Report Type: Other
  Country: US (occurrence: LK)
  Receive Date: 20200710
  Receipt Date: 20200710
  Transmission Date: 20201103
  Serious: Yes (Life-Threatening, Hospitalization)
  Sender: FDA-Public Use
  Company Number: LK-BRECKENRIDGE PHARMACEUTICAL, INC.-2087234

PATIENT
  Age: 30 Year
  Sex: Female

DRUGS (4)
  1. FLUTICASONE. [Concomitant]
     Active Substance: FLUTICASONE
  2. SALMETEROL [Concomitant]
     Active Substance: SALMETEROL
  3. SALBUTAMOL [Concomitant]
     Active Substance: ALBUTEROL
  4. MEFENAMIC ACID. [Suspect]
     Active Substance: MEFENAMIC ACID
     Indication: TOOTHACHE

REACTIONS (1)
  - Rhabdomyolysis [None]
